FAERS Safety Report 5380781-3 (Version None)
Quarter: 2007Q3

REPORT INFORMATION
  Report Type: 
  Country: None (occurrence: None)
  Receive Date: 20070706
  Receipt Date: 20070705
  Transmission Date: 20080115
  Serious: Yes (Other)
  Sender: FDA-Public Use
  Company Number: B0475499A

PATIENT
  Age: 70 Year
  Sex: Female

DRUGS (2)
  1. PAXIL [Suspect]
     Indication: DEPRESSIVE SYMPTOM
     Dosage: 10MG PER DAY
     Route: 048
  2. WARFARIN SODIUM [Concomitant]
     Route: 048

REACTIONS (3)
  - CARDIAC FAILURE [None]
  - MALAISE [None]
  - MUSCULAR WEAKNESS [None]
